FAERS Safety Report 9710128 (Version 1)
Quarter: 2013Q4

REPORT INFORMATION
  Report Type: Report from Study
  Country: BE (occurrence: BE)
  Receive Date: 20131126
  Receipt Date: 20131126
  Transmission Date: 20140711
  Serious: Yes (Other)
  Sender: FDA-Public Use
  Company Number: PHHY2013BE134746

PATIENT
  Age: 67 Year
  Sex: Female

DRUGS (1)
  1. ACLASTA [Suspect]
     Dosage: UNK, YEARLY
     Route: 042
     Dates: start: 20121220

REACTIONS (1)
  - Temporomandibular joint syndrome [Unknown]
